FAERS Safety Report 10866632 (Version 1)
Quarter: 2015Q1

REPORT INFORMATION
  Report Type: Spontaneous
  Country: CA (occurrence: None)
  Receive Date: 20150220
  Receipt Date: 20150220
  Transmission Date: 20150721
  Serious: Yes (Other)
  Sender: FDA-Public Use
  Company Number: 2015FE00462

PATIENT
  Sex: Female

DRUGS (2)
  1. PICO-SALAX [Suspect]
     Active Substance: CITRIC ACID MONOHYDRATE\MAGNESIUM OXIDE\SODIUM PICOSULFATE
     Indication: PRODUCT USED FOR UNKNOWN INDICATION
     Route: 048
  2. DULCOLAX (BISACODYL) [Suspect]
     Active Substance: BISACODYL
     Indication: PRODUCT USED FOR UNKNOWN INDICATION

REACTIONS (8)
  - Electrolyte imbalance [None]
  - Hyponatraemia [None]
  - Seizure [None]
  - Depressed level of consciousness [None]
  - Nausea [None]
  - Amnesia [None]
  - Dizziness [None]
  - Vomiting [None]
